FAERS Safety Report 8203804-2 (Version None)
Quarter: 2012Q1

REPORT INFORMATION
  Report Type: 
  Country: None (occurrence: None)
  Receive Date: 20120308
  Receipt Date: 20120221
  Transmission Date: 20120608
  Serious: Yes (Other)
  Sender: FDA-Public Use
  Company Number: DSA_55202_2012

PATIENT
  Age: 78 Year
  Sex: Female

DRUGS (2)
  1. ENALAPRIL MALEATE [Suspect]
     Indication: HYPERTENSION
     Dosage: (5 MG QD ORAL)
     Route: 048
     Dates: start: 20030101
  2. FENTANYL [Suspect]
     Indication: SPINAL OSTEOARTHRITIS
     Dosage: 50 MICROGRAM TRANSDERMAL, FREQUENCY UNKNOWN TOPICAL
     Route: 061
     Dates: start: 20040901, end: 20080701

REACTIONS (1)
  - DEMENTIA [None]
